FAERS Safety Report 11067555 (Version 1)
Quarter: 2015Q2

REPORT INFORMATION
  Report Type: Spontaneous
  Country: US (occurrence: None)
  Receive Date: 20150424
  Receipt Date: 20150424
  Transmission Date: 20150821
  Serious: Yes (Hospitalization)
  Sender: FDA-Public Use
  Company Number: None

PATIENT
  Age: 59 Year
  Sex: Female
  Weight: 56.7 kg

DRUGS (7)
  1. SUNITINIB (25 MG); MFR: PFIZER [Suspect]
     Active Substance: SUNITINIB
     Indication: BREAST CANCER METASTATIC
     Route: 048
     Dates: start: 20150115, end: 20150312
  2. ATIVAN [Concomitant]
     Active Substance: LORAZEPAM
  3. CEFUROXIME. [Concomitant]
     Active Substance: CEFUROXIME
  4. ALBUTEROL INHALER [Concomitant]
     Active Substance: ALBUTEROL
  5. ZOFRAN [Concomitant]
     Active Substance: ONDANSETRON HYDROCHLORIDE
  6. CRIZOTINIB (200 MG); MFR: PFIZER [Suspect]
     Active Substance: CRIZOTINIB
     Indication: BREAST CANCER METASTATIC
     Route: 048
     Dates: start: 20150310, end: 20150312
  7. TRAMADOL [Concomitant]
     Active Substance: TRAMADOL

REACTIONS (4)
  - Muscular weakness [None]
  - Paraesthesia [None]
  - Headache [None]
  - Anaemia [None]

NARRATIVE: CASE EVENT DATE: 20150319
